FAERS Safety Report 7713044-9 (Version None)
Quarter: 2011Q3

REPORT INFORMATION
  Report Type: 
  Country: None (occurrence: None)
  Receive Date: 20110826
  Receipt Date: 20110818
  Transmission Date: 20111222
  Serious: Yes (Hospitalization, Other)
  Sender: FDA-Public Use
  Company Number: US-PFIZER INC-2011192083

PATIENT
  Age: 25 Year
  Sex: Female

DRUGS (6)
  1. DEPAKOTE [Suspect]
     Indication: BIPOLAR II DISORDER
     Dosage: 500 MG, AT BEDTIME
     Route: 048
  2. QUETIAPINE FUMARATE [Suspect]
     Indication: BIPOLAR II DISORDER
  3. ZIPRASIDONE HCL [Suspect]
     Indication: BIPOLAR II DISORDER
  4. ARIPIPRAZOLE [Suspect]
     Indication: BIPOLAR II DISORDER
     Dosage: 5MG DAILY
  5. DEPAKOTE [Suspect]
     Dosage: 500 MG, 2X/DAY
     Route: 048
  6. LAMOTRIGINE [Suspect]
     Indication: BIPOLAR II DISORDER
     Dosage: 25MG DAILY

REACTIONS (10)
  - NAUSEA [None]
  - RASH GENERALISED [None]
  - LOW DENSITY LIPOPROTEIN INCREASED [None]
  - WEIGHT INCREASED [None]
  - BLOOD CHOLESTEROL INCREASED [None]
  - VOMITING [None]
  - DRUG RASH WITH EOSINOPHILIA AND SYSTEMIC SYMPTOMS [None]
  - BLOOD TRIGLYCERIDES INCREASED [None]
  - EXTRAPYRAMIDAL DISORDER [None]
  - INFECTIOUS MONONUCLEOSIS [None]
